FAERS Safety Report 6309262-7 (Version None)
Quarter: 2009Q3

REPORT INFORMATION
  Report Type: 
  Country: None (occurrence: None)
  Receive Date: 20090814
  Receipt Date: 20090806
  Transmission Date: 20100115
  Serious: Yes (Death)
  Sender: FDA-Public Use
  Company Number: US-PFIZER INC-2009238432

PATIENT
  Sex: Male
  Weight: 66.667 kg

DRUGS (1)
  1. CAMPTOSAR [Suspect]
     Indication: COLORECTAL CANCER METASTATIC
     Dosage: 342 MG, EVERY 2 WEEKS
     Route: 042
     Dates: start: 20090511, end: 20090526

REACTIONS (2)
  - COLON CANCER METASTATIC [None]
  - DISEASE PROGRESSION [None]
